FAERS Safety Report 12714010 (Version 1)
Quarter: 2016Q3

REPORT INFORMATION
  Report Type: Other
  Country: JP (occurrence: JP)
  Receive Date: 20160905
  Receipt Date: 20160905
  Transmission Date: 20161109
  Serious: Yes (Hospitalization)
  Sender: FDA-Public Use
  Company Number: JP-ACTELION-A-CH2016-141451

PATIENT
  Age: 74 Year
  Sex: Female

DRUGS (4)
  1. BOSENTAN. [Suspect]
     Active Substance: BOSENTAN
     Indication: PULMONARY ARTERIAL HYPERTENSION
     Route: 048
  2. ADCIRCA [Concomitant]
     Active Substance: TADALAFIL
  3. OXYGEN. [Concomitant]
     Active Substance: OXYGEN
  4. BERAPROST [Concomitant]
     Active Substance: BERAPROST

REACTIONS (3)
  - Atrial septal defect [Unknown]
  - Right-to-left cardiac shunt [Unknown]
  - Hypoxia [Unknown]

NARRATIVE: CASE EVENT DATE: 201504
